FAERS Safety Report 7629662-2 (Version None)
Quarter: 2011Q3

REPORT INFORMATION
  Report Type: 
  Country: None (occurrence: None)
  Receive Date: 20110715
  Receipt Date: 20110705
  Transmission Date: 20111222
  Serious: Yes (Congenital Anomaly, Other)
  Sender: FDA-Public Use
  Company Number: GER/GER/11/0018948

PATIENT
  Age: 3 Month
  Sex: Male
  Weight: 3.48 kg

DRUGS (4)
  1. PROPRANOLOL [Suspect]
     Indication: PRODUCT USED FOR UNKNOWN INDICATION
     Dosage: TRANSPLACENTAL
  2. MICROGYNON (EUGYNON /00022701/) [Suspect]
     Indication: ORAL CONTRACEPTION
     Dosage: TRANSPLACENTAL
  3. VALPROIC ACID [Suspect]
     Indication: SCHIZOPHRENIA
     Dosage: TRANSPLACENTAL
     Route: 064
  4. CLOZAPINE [Suspect]
     Indication: PSYCHOTIC DISORDER
     Dosage: TRANSPLACENTAL
     Route: 064

REACTIONS (7)
  - HYPOTONIA NEONATAL [None]
  - RESPIRATORY DISORDER [None]
  - RAYNAUD'S PHENOMENON [None]
  - MATERNAL DRUGS AFFECTING FOETUS [None]
  - DYSMORPHISM [None]
  - CRYPTORCHISM [None]
  - CONGENITAL ANOMALY [None]
